FAERS Safety Report 10023692 (Version 1)
Quarter: 2014Q1

REPORT INFORMATION
  Report Type: Spontaneous
  Country: US (occurrence: None)
  Receive Date: 20140319
  Receipt Date: 20140319
  Transmission Date: 20141002
  Serious: Yes (Other)
  Sender: FDA-Public Use
  Company Number: None

PATIENT
  Age: 26 Year
  Sex: Female
  Weight: 90.72 kg

DRUGS (1)
  1. MIRENA [Suspect]
     Indication: CONTRACEPTION
     Dosage: 1 DEVICE, ONCE, VAGINAL
     Route: 067
     Dates: start: 20080201, end: 20140318

REACTIONS (11)
  - Nausea [None]
  - Abdominal pain [None]
  - Uterine spasm [None]
  - Back pain [None]
  - Musculoskeletal pain [None]
  - Asthenia [None]
  - Headache [None]
  - Depression [None]
  - Abortion spontaneous [None]
  - Pregnancy with contraceptive device [None]
  - Exposure during pregnancy [None]
